FAERS Safety Report 22143196 (Version 1)
Quarter: 2023Q1

REPORT INFORMATION
  Report Type: Other
  Country: CN (occurrence: None)
  Receive Date: 20230327
  Receipt Date: 20230327
  Transmission Date: 20230417
  Serious: Yes (Hospitalization, Other)
  Sender: FDA-Public Use
  Company Number: CN-Navinta LLC-000420

PATIENT
  Age: 32 Year
  Sex: Female
  Weight: 70 kg

DRUGS (9)
  1. NICARDIPINE [Suspect]
     Active Substance: NICARDIPINE
     Indication: Blood pressure measurement
     Dosage: CONTINUOUS NICARDIPINE INFUSION (5 MG/H)
  2. ROCURONIUM [Interacting]
     Active Substance: ROCURONIUM BROMIDE
     Indication: Product used for unknown indication
     Dosage: 20 MG
  3. LABETALOL [Concomitant]
     Active Substance: LABETALOL\LABETALOL HYDROCHLORIDE
     Indication: Hypertension
     Dosage: 200 MG
     Route: 048
  4. MAGNESIUM SULFATE [Concomitant]
     Active Substance: MAGNESIUM SULFATE
     Indication: Seizure prophylaxis
     Dosage: 15 G, SEVEN HOURS POSTDELIVERY, INTRAVENOUS INFUSION OF 15 G MAGNESIUM SULFATE (1.5 G/H) WAS STARTED
     Route: 042
  5. SEVOFLURANE [Concomitant]
     Active Substance: SEVOFLURANE
     Indication: Anaesthesia
     Dosage: 2.0%-2.5% UNTIL DELIVERY
  6. MIDAZOLAM [Concomitant]
     Active Substance: MIDAZOLAM
     Indication: Product used for unknown indication
     Dosage: 2 MG
  7. SUFENTANIL [Concomitant]
     Active Substance: SUFENTANIL
     Indication: Product used for unknown indication
     Dosage: 30 MICROGRAM
  8. NICARDIPINE [Suspect]
     Active Substance: NICARDIPINE
     Indication: Blood pressure measurement
     Dosage: 3 MG/H
  9. MAGNESIUM SULFATE [Concomitant]
     Active Substance: MAGNESIUM SULFATE
     Indication: Seizure prophylaxis
     Dosage: 4 G
     Route: 042

REACTIONS (4)
  - Exposure during pregnancy [Recovered/Resolved]
  - Respiratory arrest [Recovered/Resolved]
  - Unresponsive to stimuli [Recovered/Resolved]
  - Drug interaction [Recovered/Resolved]
